FAERS Safety Report 23546113 (Version 7)
Quarter: 2024Q3

REPORT INFORMATION
  Report Type: Spontaneous
  Country: US (occurrence: US)
  Receive Date: 20240220
  Receipt Date: 20240826
  Transmission Date: 20241017
  Serious: Yes (Other)
  Sender: BRISTOL MYERS SQUIBB
  Company Number: US-BRISTOL-MYERS SQUIBB COMPANY-2024-027693

PATIENT
  Age: 64 Year
  Sex: Male
  Weight: 73.94 kg

DRUGS (3)
  1. LENALIDOMIDE [Suspect]
     Active Substance: LENALIDOMIDE
     Indication: Plasma cell myeloma
     Dosage: FREQUENCY: DAILY X 21 DAYS ON AND 7 DAYS OFF
     Route: 048
     Dates: start: 20230301
  2. LENALIDOMIDE [Suspect]
     Active Substance: LENALIDOMIDE
     Dates: start: 20240328
  3. LENALIDOMIDE [Suspect]
     Active Substance: LENALIDOMIDE
     Dosage: FREQUENCY: DAILY ON DAYS 1-21 OF 28 DAY CYCLE
     Route: 048

REACTIONS (11)
  - Drug ineffective [Not Recovered/Not Resolved]
  - Gait disturbance [Recovering/Resolving]
  - White blood cell count decreased [Recovering/Resolving]
  - Decreased appetite [Recovering/Resolving]
  - Aggression [Recovering/Resolving]
  - Red blood cell count decreased [Recovering/Resolving]
  - Decreased immune responsiveness [Recovering/Resolving]
  - Depression [Recovering/Resolving]
  - Depressed mood [Unknown]
  - Drug intolerance [Unknown]
  - Platelet count decreased [Not Recovered/Not Resolved]
